FAERS Safety Report 15883133 (Version 4)
Quarter: 2019Q2

REPORT INFORMATION
  Report Type: Report from Study
  Country: US (occurrence: US)
  Receive Date: 20190129
  Receipt Date: 20190417
  Transmission Date: 20190711
  Serious: Yes (Other)
  Sender: FDA-Public Use
  Company Number: US-ROCHE-2249762

PATIENT
  Age: 61 Year
  Sex: Female
  Weight: 75.4 kg

DRUGS (4)
  1. ATEZOLIZUMAB. [Suspect]
     Active Substance: ATEZOLIZUMAB
     Indication: OVARIAN CANCER
     Dosage: DATE OF MOST RECENT DOSE OF ATEZOLIZUMAB : 29/NOV/2018 (1600 MG)
     Route: 042
     Dates: start: 20181115
  2. BEVACIZUMAB. [Suspect]
     Active Substance: BEVACIZUMAB
     Indication: OVARIAN CANCER
     Dosage: DATE OF MOST RECENT DOSE OF BEVACIZUMAB PRIOR TO AE : 29/NOV/218 (1496.8 MG)
     Route: 042
     Dates: start: 20181115
  3. NIRAPARIB TOSYLATE MONOHYDRATE [Suspect]
     Active Substance: NIRAPARIB TOSYLATE MONOHYDRATE
     Indication: PRODUCT USED FOR UNKNOWN INDICATION
     Route: 065
     Dates: start: 201805, end: 201809
  4. DOXORUBICIN [Suspect]
     Active Substance: DOXORUBICIN
     Indication: OVARIAN CANCER
     Dosage: DATE OF MOST RECENT DOSE OF DOXORUBICIN PRIOR TO SAE : 15/NOV/2018
     Route: 042
     Dates: start: 20181115

REACTIONS (1)
  - Myelodysplastic syndrome [Not Recovered/Not Resolved]

NARRATIVE: CASE EVENT DATE: 20190104
